FAERS Safety Report 9862500 (Version 2)
Quarter: 2014Q3

REPORT INFORMATION
  Report Type: Spontaneous
  Country: US (occurrence: US)
  Receive Date: 20140203
  Receipt Date: 20140731
  Transmission Date: 20150326
  Serious: Yes (Hospitalization, Other)
  Sender: FDA-Public Use
  Company Number: US-009507513-1402USA000065

PATIENT
  Sex: Female

DRUGS (1)
  1. NUVARING [Suspect]
     Active Substance: ETHINYL ESTRADIOL\ETONOGESTREL
     Indication: CONTRACEPTION
     Dosage: UNK
     Route: 067
     Dates: end: 201203

REACTIONS (17)
  - Cerebrovascular accident [Not Recovered/Not Resolved]
  - Tachycardia [Unknown]
  - Migraine [Not Recovered/Not Resolved]
  - Radiculopathy [Unknown]
  - Ureteral disorder [Unknown]
  - Menorrhagia [Recovering/Resolving]
  - Thoracic outlet syndrome [Unknown]
  - Chest pain [Not Recovered/Not Resolved]
  - Pulmonary embolism [Recovered/Resolved]
  - Migraine [Unknown]
  - Asthma [Unknown]
  - Hypertension [Unknown]
  - Renal artery stent placement [Unknown]
  - Knee operation [Unknown]
  - Nephrolithiasis [Unknown]
  - Gastroenteritis [Unknown]
  - Depression [Unknown]

NARRATIVE: CASE EVENT DATE: 20120215
